FAERS Safety Report 15742149 (Version 1)
Quarter: 2018Q4

REPORT INFORMATION
  Report Type: Report from Study
  Country: US (occurrence: US)
  Receive Date: 20181219
  Receipt Date: 20181219
  Transmission Date: 20190205
  Serious: No
  Sender: FDA-Public Use
  Company Number: US-INCYTE CORPORATION-2018IN012287

PATIENT

DRUGS (1)
  1. JAKAFI [Suspect]
     Active Substance: RUXOLITINIB
     Indication: MYELOFIBROSIS
     Dosage: 5 MG, QD ALTERNATING WITH BID
     Route: 048
     Dates: start: 20170615

REACTIONS (2)
  - Inappropriate schedule of product administration [Unknown]
  - Rash macular [Unknown]

NARRATIVE: CASE EVENT DATE: 20170615
